FAERS Safety Report 24893298 (Version 2)
Quarter: 2025Q1

REPORT INFORMATION
  Report Type: Report from Study
  Country: US (occurrence: US)
  Receive Date: 20250128
  Receipt Date: 20250212
  Transmission Date: 20250408
  Serious: No
  Sender: BRISTOL-MYERS SQUIBB COMPANY
  Company Number: US-BRISTOL-MYERS SQUIBB COMPANY-2025-012547

PATIENT
  Age: 82 Year
  Sex: Male
  Weight: 97.52 kg

DRUGS (2)
  1. ELIQUIS [Suspect]
     Active Substance: APIXABAN
     Indication: Deep vein thrombosis
     Dosage: FREQ : TWO IN THE MORNING AND TWO AT NIGHT
     Route: 048
     Dates: start: 20250124
  2. LISINOPRIL [Concomitant]
     Active Substance: LISINOPRIL
     Indication: Blood pressure measurement

REACTIONS (5)
  - Peripheral swelling [Unknown]
  - Retching [Recovered/Resolved]
  - Abdominal discomfort [Recovered/Resolved]
  - Pain [Recovered/Resolved]
  - Dizziness [Unknown]

NARRATIVE: CASE EVENT DATE: 20250101
